FAERS Safety Report 25158725 (Version 1)
Quarter: 2025Q2

REPORT INFORMATION
  Report Type: Spontaneous
  Country: CA (occurrence: CA)
  Receive Date: 20250404
  Receipt Date: 20250404
  Transmission Date: 20250717
  Serious: Yes (Disabling)
  Sender: SANDOZ
  Company Number: CA-SANDOZ-SDZ2025CA019367

PATIENT
  Age: 53 Year
  Sex: Female
  Weight: 58.97 kg

DRUGS (1)
  1. TIMOLOL [Suspect]
     Active Substance: TIMOLOL
     Indication: Intraocular pressure test abnormal
     Dosage: 1 GTT DROPS, QD STRENGTH 0.5 %
     Route: 047
     Dates: start: 20250301, end: 20250326

REACTIONS (10)
  - Periorbital swelling [Unknown]
  - Loss of personal independence in daily activities [Unknown]
  - Dry eye [Unknown]
  - Ocular discomfort [Unknown]
  - Eye pruritus [Unknown]
  - Eye pain [Unknown]
  - Eye irritation [Unknown]
  - Asthenopia [Unknown]
  - Product availability issue [Unknown]
  - Product quality issue [Unknown]

NARRATIVE: CASE EVENT DATE: 20250305
